FAERS Safety Report 23772679 (Version 2)
Quarter: 2024Q3

REPORT INFORMATION
  Report Type: Report from Study
  Country: US (occurrence: US)
  Receive Date: 20240423
  Receipt Date: 20240725
  Transmission Date: 20241016
  Serious: Yes (Hospitalization)
  Sender: BIOVITRUM
  Company Number: US-BIOVITRUM-2023-US-021532

PATIENT
  Age: 64 Year
  Sex: Female

DRUGS (1)
  1. KINERET [Suspect]
     Active Substance: ANAKINRA
     Indication: Pain
     Dosage: DAILY
     Route: 058
     Dates: start: 20220215

REACTIONS (7)
  - Product dose omission issue [Unknown]
  - Product use issue [Unknown]
  - Sciatica [Unknown]
  - Depressed mood [Unknown]
  - Loss of personal independence in daily activities [Unknown]
  - Fall [Recovering/Resolving]
  - Feeling abnormal [Recovering/Resolving]
